FAERS Safety Report 8238485-5 (Version None)
Quarter: 2012Q1

REPORT INFORMATION
  Report Type: 
  Country: None (occurrence: None)
  Receive Date: 20120327
  Receipt Date: 20120322
  Transmission Date: 20120608
  Serious: Yes (Other)
  Sender: FDA-Public Use
  Company Number: ES-PFIZER INC-2012074380

PATIENT
  Age: 49 Year
  Sex: Female

DRUGS (6)
  1. LORAZEPAM [Interacting]
     Indication: ANXIETY
     Dosage: 7.5 MG, 1X/DAY
     Route: 048
     Dates: start: 20110101
  2. ALPRAZOLAM [Suspect]
     Indication: ANXIETY
     Dosage: 1 MG, AS NEEDED
     Route: 048
     Dates: start: 20110101
  3. PALIPERIDONE [Interacting]
     Indication: SUICIDE ATTEMPT
     Dosage: 6 MG, 1X/DAY
     Route: 048
     Dates: start: 20101203
  4. NOCTAMID [Interacting]
     Indication: INSOMNIA
     Dosage: 2 MG, 1X/DAY
     Route: 048
     Dates: start: 20110101
  5. PAROXETINE HCL [Interacting]
     Indication: DEPRESSION
     Dosage: 20 MG, 1X/DAY
     Route: 048
     Dates: start: 20110101, end: 20110519
  6. PAROXETINE HCL [Interacting]
     Dosage: 30 MG, 1X/DAY
     Dates: start: 20110519

REACTIONS (2)
  - ABNORMAL WEIGHT GAIN [None]
  - DRUG INTERACTION [None]
